FAERS Safety Report 4577685-2 (Version None)
Quarter: 2005Q1

REPORT INFORMATION
  Report Type: 
  Country: None (occurrence: None)
  Receive Date: 20050210
  Receipt Date: 20050201
  Transmission Date: 20050727
  Serious: Yes (Death)
  Sender: FDA-Public Use
  Company Number: US-MERCK-0502USA00822

PATIENT
  Age: 57 Year
  Sex: Female
  Weight: 78 kg

DRUGS (4)
  1. VIOXX [Suspect]
     Route: 065
  2. CLOZARIL [Suspect]
     Route: 065
  3. LORAZEPAM [Concomitant]
     Route: 065
  4. PAXIL [Concomitant]
     Route: 065

REACTIONS (4)
  - DRUG TOXICITY [None]
  - HEPATIC STEATOSIS [None]
  - PORTAL TRIADITIS [None]
  - UTERINE LEIOMYOMA [None]
